FAERS Safety Report 4913693-7 (Version None)
Quarter: 2006Q1

REPORT INFORMATION
  Report Type: 
  Country: None (occurrence: None)
  Receive Date: 20060214
  Receipt Date: 20060214
  Transmission Date: 20060701
  Serious: Yes (Hospitalization, Other)
  Sender: FDA-Public Use
  Company Number: None

PATIENT
  Sex: Male
  Weight: 89.9 kg

DRUGS (2)
  1. ALFA 2 INTERFERON 2 B INTRON-A) [Suspect]
     Indication: RENAL CELL CARCINOMA STAGE UNSPECIFIED
     Dosage: 3MG
     Dates: start: 20060124
  2. LEVAQUIN [Concomitant]

REACTIONS (9)
  - ASTHENIA [None]
  - ATELECTASIS [None]
  - BODY TEMPERATURE INCREASED [None]
  - CARDIAC FAILURE CONGESTIVE [None]
  - LUNG INFILTRATION [None]
  - NAUSEA [None]
  - PNEUMONIA [None]
  - PRODUCTIVE COUGH [None]
  - VOMITING [None]
